FAERS Safety Report 18972025 (Version 1)
Quarter: 2021Q1

REPORT INFORMATION
  Report Type: Spontaneous
  Country: US (occurrence: US)
  Receive Date: 20210304
  Receipt Date: 20210304
  Transmission Date: 20210420
  Serious: Yes (Disabling, Other)
  Sender: FDA-Public Use
  Company Number: None

PATIENT
  Age: 25 Year
  Sex: Male
  Weight: 97.98 kg

DRUGS (4)
  1. HTZ [Concomitant]
     Active Substance: HYDROCHLOROTHIAZIDE
  2. LISINOPRIL. [Concomitant]
     Active Substance: LISINOPRIL
  3. DURAGESIC [Concomitant]
     Active Substance: FENTANYL
     Dosage: ?          QUANTITY:5 PER BOX;OTHER FREQUENCY:1 EVERY 2 DAYS;?75 UG?100UG
     Route: 062
     Dates: start: 20020921, end: 200808
  4. CRESTOR [Concomitant]
     Active Substance: ROSUVASTATIN CALCIUM

REACTIONS (1)
  - Connective tissue disorder [None]

NARRATIVE: CASE EVENT DATE: 200209
